FAERS Safety Report 8793458 (Version 2)
Quarter: 2013Q1

REPORT INFORMATION
  Report Type: Spontaneous
  Country: US (occurrence: US)
  Receive Date: 20120917
  Receipt Date: 20120926
  Transmission Date: 20140127
  Serious: Yes (Hospitalization)
  Sender: FDA-Public Use
  Company Number: US-ASTRAZENECA-2012SE64887

PATIENT
  Age: 65 Year
  Sex: Male
  Weight: 52.16 kg

DRUGS (10)
  1. RAMIPRIL [Suspect]
     Dosage: 160/4.5, UNKNOWN FREQUENCY
     Route: 048
     Dates: start: 20080401, end: 20111116
  2. BISOPROLOL (BISOPROLOL) [Concomitant]
  3. FEXOFENADINE [Concomitant]
  4. FUROSEMIDE (FUROSEMIDE) [Concomitant]
  5. HYDROXYCARBAMIDE (HYDROXYCARBAMIDE) [Concomitant]
  6. IPRATROPIUM BROMIDE (IPRATROPIUM BROMIDE) [Concomitant]
  7. OMEPRAZOLE (OMEPRAZOLE) [Concomitant]
  8. SPIROONOLACTONE (SPIRONOLACTONE) [Concomitant]
  9. THIAMINE (THIAMINE) [Concomitant]
  10. WARFARIN (WARFARIN) [Concomitant]

REACTIONS (1)
  - Asthma [Unknown]
